FAERS Safety Report 8616302-9 (Version None)
Quarter: 2012Q3

REPORT INFORMATION
  Report Type: 
  Country: None (occurrence: None)
  Receive Date: 20120823
  Receipt Date: 20120801
  Transmission Date: 20120928
  Serious: No
  Sender: FDA-Public Use
  Company Number: US-009507513-1208USA002035

PATIENT

DRUGS (7)
  1. TRAMADOL HYDROCHLORIDE [Concomitant]
  2. OMEGA-3-ACID ETHYL ESTERS [Concomitant]
  3. PRILOSEC [Concomitant]
  4. VICTRELIS [Suspect]
     Indication: HEPATITIS C
     Dosage: 800 MG, TID
     Route: 048
     Dates: start: 20120705
  5. RIBASPHERE [Concomitant]
     Indication: HEPATITIS C
  6. PEGASYS [Concomitant]
     Indication: HEPATITIS C
  7. TYLENOL [Concomitant]

REACTIONS (1)
  - WHITE BLOOD CELL COUNT ABNORMAL [None]
